FAERS Safety Report 15718480 (Version 1)
Quarter: 2018Q4

REPORT INFORMATION
  Report Type: Spontaneous
  Country: US (occurrence: US)
  Receive Date: 20181213
  Receipt Date: 20181213
  Transmission Date: 20190205
  Serious: Yes (Hospitalization)
  Sender: FDA-Public Use
  Company Number: None

PATIENT
  Age: 75 Year
  Sex: Female
  Weight: 62.1 kg

DRUGS (9)
  1. DEXAMETHASONE. [Suspect]
     Active Substance: DEXAMETHASONE
     Dosage: ?          OTHER FREQUENCY:3 DAYS PER 28-DAY;?
     Route: 048
     Dates: start: 20180702
  2. LOSARTAN POTASSIUM. [Concomitant]
     Active Substance: LOSARTAN POTASSIUM
  3. NINLARO [Suspect]
     Active Substance: IXAZOMIB CITRATE
     Indication: PLASMA CELL MYELOMA
     Dosage: ?          OTHER FREQUENCY:3 DAYS PER 28-DAY;?
     Route: 048
     Dates: start: 20180613
  4. FOLIC ACID. [Concomitant]
     Active Substance: FOLIC ACID
  5. SPIRONOLACTONE. [Concomitant]
     Active Substance: SPIRONOLACTONE
  6. NEULASTA [Concomitant]
     Active Substance: PEGFILGRASTIM
  7. XGEVA [Concomitant]
     Active Substance: DENOSUMAB
  8. CARVEDILOL. [Concomitant]
     Active Substance: CARVEDILOL
  9. FUROSEMIDE. [Concomitant]
     Active Substance: FUROSEMIDE

REACTIONS (1)
  - Influenza [None]

NARRATIVE: CASE EVENT DATE: 20181213
